FAERS Safety Report 7737055-2 (Version None)
Quarter: 2011Q3

REPORT INFORMATION
  Report Type: 
  Country: None (occurrence: None)
  Receive Date: 20110902
  Receipt Date: 20110822
  Transmission Date: 20111222
  Serious: Yes (Hospitalization)
  Sender: FDA-Public Use
  Company Number: 2011MA012384

PATIENT
  Age: 43 Year
  Sex: Male

DRUGS (2)
  1. TERBINAFINE HCL [Suspect]
     Indication: NAIL INFECTION
  2. RISPERIDONE [Suspect]
     Indication: SCHIZOAFFECTIVE DISORDER
     Dosage: 37.5 MG;INJ

REACTIONS (4)
  - PSYCHIATRIC SYMPTOM [None]
  - HALLUCINATION, AUDITORY [None]
  - PERSECUTORY DELUSION [None]
  - EXTRAPYRAMIDAL DISORDER [None]
